FAERS Safety Report 10052278 (Version 2)
Quarter: 2014Q2

REPORT INFORMATION
  Report Type: Spontaneous
  Country: CH (occurrence: CH)
  Receive Date: 20140402
  Receipt Date: 20140410
  Transmission Date: 20141212
  Serious: Yes (Hospitalization, Other)
  Sender: FDA-Public Use
  Company Number: CH-JNJFOC-20140310779

PATIENT
  Age: 48 Year
  Sex: Female
  Weight: 60 kg

DRUGS (11)
  1. REMICADE [Suspect]
     Indication: CROHN^S DISEASE
     Dosage: PT HAD RECEIVED 1 INFUSION
     Route: 042
     Dates: start: 20140212, end: 20140212
  2. REMICADE [Suspect]
     Indication: CROHN^S DISEASE
     Route: 042
     Dates: start: 1999
  3. METHOTREXATE [Concomitant]
     Indication: CROHN^S DISEASE
     Route: 065
     Dates: start: 1997, end: 1999
  4. METHOTREXATE [Concomitant]
     Indication: CROHN^S DISEASE
     Dosage: WEEKLY
     Route: 065
     Dates: start: 20070418
  5. METHOTREXATE [Concomitant]
     Indication: ARTHRITIS
     Dosage: WEEKLY
     Route: 065
     Dates: start: 20070418
  6. METHOTREXATE [Concomitant]
     Indication: ARTHRITIS
     Route: 065
     Dates: start: 1997, end: 1999
  7. SPIRICORT [Concomitant]
     Indication: CROHN^S DISEASE
     Dosage: ^DOWNWARD^
     Route: 065
     Dates: start: 20131219
  8. ACIDUM FOLICUM [Concomitant]
     Indication: UNEVALUABLE EVENT
     Route: 065
     Dates: start: 20070418
  9. CALCIUM CARBONATE [Concomitant]
     Indication: OSTEOPENIA
     Route: 065
  10. JARSIN [Concomitant]
     Indication: MENOPAUSE
     Route: 065
  11. CIMIFEMIN [Concomitant]
     Indication: MENOPAUSE
     Route: 065

REACTIONS (8)
  - Polyarthritis [Not Recovered/Not Resolved]
  - Arthritis [Not Recovered/Not Resolved]
  - Anaemia [Not Recovered/Not Resolved]
  - Laryngeal oedema [Not Recovered/Not Resolved]
  - Hypotension [Not Recovered/Not Resolved]
  - Type IV hypersensitivity reaction [Not Recovered/Not Resolved]
  - Pharyngeal oedema [Not Recovered/Not Resolved]
  - Bradycardia [Not Recovered/Not Resolved]
